FAERS Safety Report 9365331 (Version 3)
Quarter: 2013Q3

REPORT INFORMATION
  Report Type: Spontaneous
  Country: SE (occurrence: SE)
  Receive Date: 20130625
  Receipt Date: 20130730
  Transmission Date: 20140515
  Serious: Yes (Hospitalization)
  Sender: FDA-Public Use
  Company Number: SE-ROCHE-1240484

PATIENT
  Age: 63 Year
  Sex: Female

DRUGS (8)
  1. ROACTEMRA [Suspect]
     Indication: RHEUMATOID ARTHRITIS
     Dosage: CONCENTRATION FOR SOLUTION FOR INFUSION: 20 MG/ML
     Route: 042
     Dates: start: 20130415
  2. KALCIPOS-D [Concomitant]
  3. OMEPRAZOL [Concomitant]
  4. BISOPROLOL [Concomitant]
  5. SAROTEN [Concomitant]
     Route: 065
  6. DUROFERON [Concomitant]
     Route: 065
  7. LASIX [Concomitant]
     Route: 065
  8. ATACAND [Concomitant]
     Route: 065

REACTIONS (4)
  - Pyrexia [Unknown]
  - Pneumonia [Not Recovered/Not Resolved]
  - Hearing impaired [Not Recovered/Not Resolved]
  - Otitis media [Not Recovered/Not Resolved]
